FAERS Safety Report 13072457 (Version 2)
Quarter: 2017Q1

REPORT INFORMATION
  Report Type: Report from Study
  Country: US (occurrence: US)
  Receive Date: 20161229
  Receipt Date: 20170220
  Transmission Date: 20170428
  Serious: Yes (Death, Other)
  Sender: FDA-Public Use
  Company Number: US-GILEAD-2016-0250888

PATIENT
  Age: 60 Year
  Sex: Male
  Weight: 74.8 kg

DRUGS (3)
  1. ADEMPAS [Concomitant]
     Active Substance: RIOCIGUAT
  2. REMODULIN [Suspect]
     Active Substance: TREPROSTINIL
     Indication: PULMONARY HYPERTENSION
     Dosage: 0.048 UG/KG CONTINUING
     Route: 042
     Dates: start: 20150910
  3. AMBRISENTAN [Suspect]
     Active Substance: AMBRISENTAN
     Indication: PRODUCT USED FOR UNKNOWN INDICATION
     Dosage: 5 MG, UNK
     Route: 065
     Dates: start: 20130114

REACTIONS (3)
  - Cerebrovascular accident [Fatal]
  - Air embolism [Fatal]
  - Device issue [Unknown]

NARRATIVE: CASE EVENT DATE: 201612
